FAERS Safety Report 5534146-1 (Version None)
Quarter: 2007Q4

REPORT INFORMATION
  Report Type: 
  Country: None (occurrence: None)
  Receive Date: 20071129
  Receipt Date: 20071129
  Transmission Date: 20080405
  Serious: Yes (Death, Hospitalization)
  Sender: FDA-Public Use
  Company Number: None

PATIENT
  Sex: Male
  Weight: 82.7 kg

DRUGS (4)
  1. CYTARABINE [Suspect]
     Dates: end: 20070805
  2. DAUNORUBICIN HCL [Suspect]
     Dates: end: 20070807
  3. ETOPOSIDE [Suspect]
     Dates: end: 20070813
  4. CLOFARABINE [Concomitant]

REACTIONS (5)
  - BLOOD CULTURE POSITIVE [None]
  - CULTURE POSITIVE [None]
  - HAEMOPTYSIS [None]
  - HYPOXIA [None]
  - PSEUDOMONAS INFECTION [None]
